FAERS Safety Report 11124858 (Version 1)
Quarter: 2015Q2

REPORT INFORMATION
  Report Type: Spontaneous
  Country: FR (occurrence: None)
  Receive Date: 20150518
  Receipt Date: 20150518
  Transmission Date: 20150821
  Serious: Yes (Hospitalization, Other)
  Sender: FDA-Public Use
  Company Number: FR205GSK028554

PATIENT
  Age: 54 Year
  Sex: Female

DRUGS (4)
  1. MARAVIROC (MARAVIROC) UNKNOWN [Suspect]
     Active Substance: MARAVIROC
     Route: 048
     Dates: start: 20100122
  2. RITONAVIR (RITONAVIR) [Concomitant]
     Active Substance: RITONAVIR
  3. NEVIRAPINE (NEVIRAPINE) [Concomitant]
     Active Substance: NEVIRAPINE
  4. DARUNAVIR (DARUNAVIR) [Concomitant]
     Active Substance: DARUNAVIR

REACTIONS (3)
  - Vaginal fistula [None]
  - Vulval abscess [None]
  - Polyneuropathy [None]

NARRATIVE: CASE EVENT DATE: 20140919
